FAERS Safety Report 5853354-3 (Version None)
Quarter: 2008Q3

REPORT INFORMATION
  Report Type: 
  Country: None (occurrence: None)
  Receive Date: 20080821
  Receipt Date: 20080811
  Transmission Date: 20090109
  Serious: Yes (Death, Hospitalization)
  Sender: FDA-Public Use
  Company Number: US-PFIZER INC-2006114391

PATIENT
  Sex: Female
  Weight: 36 kg

DRUGS (1)
  1. BEXTRA [Suspect]
     Indication: JUVENILE ARTHRITIS
     Route: 048
     Dates: start: 20030516, end: 20040702

REACTIONS (4)
  - CARDIAC FAILURE CONGESTIVE [None]
  - HEPATIC FAILURE [None]
  - PULMONARY HYPERTENSION [None]
  - VENTRICULAR FIBRILLATION [None]
